FAERS Safety Report 5198140-5 (Version None)
Quarter: 2006Q4

REPORT INFORMATION
  Report Type: 
  Country: None (occurrence: None)
  Receive Date: 20061227
  Receipt Date: 20061213
  Transmission Date: 20070319
  Serious: Yes (Hospitalization)
  Sender: FDA-Public Use
  Company Number: 2006153734

PATIENT
  Age: 47 Year
  Sex: Male
  Weight: 73 kg

DRUGS (3)
  1. ZAVEDOS POWDER, STERILE (IDARUBICIN HYDROCHLORIDE) [Suspect]
     Indication: ACUTE MYELOID LEUKAEMIA
     Dosage: (17 MG, DAILY: 2 DAYS), INTRAVENOUS
     Route: 042
     Dates: start: 20061109, end: 20061110
  2. CYTARABINE [Suspect]
     Indication: ACUTE MYELOID LEUKAEMIA
     Dosage: (190 MG, DAILY: 5 DAYS), INTRAVENOUS
     Route: 042
     Dates: start: 20061109, end: 20061113
  3. ETOPOSIDE [Suspect]
     Indication: ACUTE MYELOID LEUKAEMIA
     Dosage: (145 MG, DAILY: 5 DAYS), INTRAVENOUS
     Route: 042
     Dates: start: 20061109, end: 20061113

REACTIONS (3)
  - SKIN INJURY [None]
  - SKIN SWELLING [None]
  - SUNBURN [None]
